FAERS Safety Report 4480574-5 (Version None)
Quarter: 2004Q4

REPORT INFORMATION
  Report Type: 
  Country: None (occurrence: None)
  Receive Date: 20041019
  Receipt Date: 20041004
  Transmission Date: 20050328
  Serious: Yes (Hospitalization)
  Sender: FDA-Public Use
  Company Number: 200408753

PATIENT
  Age: 38 Year
  Sex: Female
  Weight: 70 kg

DRUGS (1)
  1. BOTOX PURIFIED NEUROTOXIN COMPLEX [Suspect]
     Indication: FACIAL SPASM
     Dosage: 30 UNITS ONCE IM
     Route: 030

REACTIONS (5)
  - DYSPHAGIA [None]
  - DYSPHONIA [None]
  - MEDICATION ERROR [None]
  - PARAESTHESIA [None]
  - POST PROCEDURAL COMPLICATION [None]
